FAERS Safety Report 12584006 (Version 2)
Quarter: 2017Q1

REPORT INFORMATION
  Report Type: Report from Study
  Country: US (occurrence: US)
  Receive Date: 20160722
  Receipt Date: 20170127
  Transmission Date: 20170428
  Serious: No
  Sender: FDA-Public Use
  Company Number: PHHY2016US099498

PATIENT
  Age: 26 Year
  Sex: Female

DRUGS (1)
  1. GILENYA [Suspect]
     Active Substance: FINGOLIMOD HYDROCHLORIDE
     Indication: MULTIPLE SCLEROSIS
     Dosage: UNK, QD
     Route: 048

REACTIONS (10)
  - Neck pain [Unknown]
  - Myalgia [Unknown]
  - Vision blurred [Unknown]
  - Fatigue [Unknown]
  - Body tinea [Unknown]
  - White blood cell count decreased [Unknown]
  - Dizziness [Unknown]
  - Eye pain [Unknown]
  - Vertigo [Unknown]
  - Lymphocyte count decreased [Unknown]

NARRATIVE: CASE EVENT DATE: 20140502
